FAERS Safety Report 7526759-2 (Version None)
Quarter: 2011Q2

REPORT INFORMATION
  Report Type: 
  Country: None (occurrence: None)
  Receive Date: 20110606
  Receipt Date: 20110527
  Transmission Date: 20111010
  Serious: Yes (Hospitalization)
  Sender: FDA-Public Use
  Company Number: CA-ABBOTT-11P-028-0715167-00

PATIENT
  Sex: Female

DRUGS (17)
  1. PREDNISONE [Concomitant]
     Route: 048
     Dates: start: 20101124, end: 20101203
  2. PRILOSEC [Concomitant]
     Indication: DYSPEPSIA
     Route: 048
     Dates: start: 20090420
  3. PREDNISONE [Concomitant]
     Route: 048
     Dates: start: 20101118, end: 20101123
  4. CLONAZEPAM [Concomitant]
     Indication: DEPRESSION
     Route: 048
     Dates: start: 20101123
  5. IBUPROFEN [Concomitant]
     Indication: RHEUMATOID ARTHRITIS
     Route: 048
     Dates: start: 20041006
  6. PREDNISONE [Concomitant]
     Route: 048
     Dates: start: 20101204
  7. HUMIRA [Suspect]
     Indication: RHEUMATOID ARTHRITIS
     Route: 058
     Dates: start: 20030729, end: 20101129
  8. METHOTREXATE [Concomitant]
     Indication: RHEUMATOID ARTHRITIS
     Dates: start: 20010801
  9. MESALAMINE [Concomitant]
     Indication: COLITIS
     Route: 048
     Dates: start: 20101117
  10. MIRTAZAPIN [Concomitant]
     Indication: DEPRESSION
     Route: 048
     Dates: start: 20101123
  11. ACETAMINOPHEN [Concomitant]
     Indication: RHEUMATOID ARTHRITIS
     Route: 048
     Dates: start: 20001201
  12. ACETAMINOPHEN [Concomitant]
     Route: 048
     Dates: start: 20010805, end: 20010806
  13. ACETAMINOPHEN [Concomitant]
     Indication: HEADACHE
     Route: 048
     Dates: start: 20010607, end: 20010807
  14. PYRIDOXINE [Concomitant]
     Indication: ANTIBIOTIC PROPHYLAXIS
     Route: 048
     Dates: start: 20060502
  15. PREDNISONE [Concomitant]
     Indication: COLITIS
     Route: 048
     Dates: start: 20101112, end: 20101117
  16. ACETAMINOPHEN [Concomitant]
     Indication: INFLUENZA LIKE ILLNESS
     Route: 048
     Dates: start: 20011010, end: 20011107
  17. PREDNISONE [Concomitant]
     Route: 048
     Dates: start: 20101103, end: 20101111

REACTIONS (1)
  - COLITIS [None]
